FAERS Safety Report 21297350 (Version 1)
Quarter: 2022Q3

REPORT INFORMATION
  Report Type: Spontaneous
  Country: US (occurrence: None)
  Receive Date: 20220902
  Receipt Date: 20220902
  Transmission Date: 20221027
  Serious: Yes (Death)
  Sender: FDA-Public Use
  Company Number: None

PATIENT
  Age: 85 Year
  Sex: Female

DRUGS (1)
  1. REVLIMID [Suspect]
     Active Substance: LENALIDOMIDE
     Indication: Myelodysplastic syndrome
     Dosage: FREQUENCY : DAILY;?
     Route: 048
     Dates: start: 20201104, end: 20220201

REACTIONS (6)
  - Syncope [None]
  - Loss of consciousness [None]
  - Oxygen saturation decreased [None]
  - Product supply issue [None]
  - Pyrexia [None]
  - Hallucination [None]

NARRATIVE: CASE EVENT DATE: 20220201
